FAERS Safety Report 8377177-9 (Version None)
Quarter: 2012Q2

REPORT INFORMATION
  Report Type: 
  Country: None (occurrence: None)
  Receive Date: 20120521
  Receipt Date: 20120508
  Transmission Date: 20120825
  Serious: Yes (Hospitalization, Other)
  Sender: FDA-Public Use
  Company Number: AUR-APL-2012-02215

PATIENT
  Age: 50 Year
  Sex: Female
  Weight: 47.17 kg

DRUGS (1)
  1. VENLAFAXINE [Suspect]
     Indication: HOT FLUSH
     Dosage: 150 MG (75 MG,2 IN 1 D),
     Dates: start: 20080101

REACTIONS (2)
  - RENAL FAILURE [None]
  - LYMPHADENOPATHY [None]
